FAERS Safety Report 23796818 (Version 1)
Quarter: 2024Q2

REPORT INFORMATION
  Report Type: Spontaneous
  Country: FR (occurrence: FR)
  Receive Date: 20240430
  Receipt Date: 20240430
  Transmission Date: 20240716
  Serious: Yes (Hospitalization, Other)
  Sender: FDA-Public Use
  Company Number: FR-SUN PHARMACEUTICAL INDUSTRIES LTD-2024RR-444609

PATIENT
  Age: 39 Year
  Sex: Male
  Weight: 78 kg

DRUGS (8)
  1. QUETIAPINE [Suspect]
     Active Substance: QUETIAPINE
     Indication: Poisoning deliberate
     Dosage: QUETIAPINE LP 300MG, QUANTITY UNKNOWN
     Route: 048
     Dates: start: 20230612, end: 20230612
  2. ZOPICLONE [Suspect]
     Active Substance: ZOPICLONE
     Indication: Poisoning deliberate
     Dosage: UNKNOWN
     Route: 048
     Dates: start: 20230612, end: 20230612
  3. PAROXETINE [Suspect]
     Active Substance: PAROXETINE
     Indication: Poisoning deliberate
     Dosage: PAROXETINE 20MG, QUANTITY UNKNOWN
     Route: 048
     Dates: start: 20230612, end: 20230612
  4. METHADONE [Suspect]
     Active Substance: METHADONE HYDROCHLORIDE
     Indication: Poisoning deliberate
     Dosage: METHADONE 70MG, QUANTITY UNKNOWN
     Route: 048
     Dates: start: 20230612, end: 20230612
  5. NALTREXONE [Suspect]
     Active Substance: NALTREXONE
     Indication: Poisoning deliberate
     Dosage: UNK
     Route: 065
     Dates: start: 20230612, end: 20230612
  6. LOXAPINE [Suspect]
     Active Substance: LOXAPINE
     Indication: Poisoning deliberate
     Dosage: LOXAPAC 100MG, QUANTITY UNKNOWN
     Route: 048
     Dates: start: 20230612, end: 20230612
  7. OXAZEPAM [Suspect]
     Active Substance: OXAZEPAM
     Indication: Poisoning deliberate
     Dosage: UNKNOWN
     Route: 048
     Dates: start: 20230612, end: 20230612
  8. COCAINE [Suspect]
     Active Substance: COCAINE
     Indication: Product used for unknown indication
     Dosage: UNKNOWN
     Route: 065
     Dates: start: 20230612, end: 20230612

REACTIONS (2)
  - Serotonin syndrome [Recovered/Resolved]
  - Drug abuse [Recovered/Resolved]

NARRATIVE: CASE EVENT DATE: 20230612
